FAERS Safety Report 12510847 (Version 1)
Quarter: 2016Q2

REPORT INFORMATION
  Report Type: Spontaneous
  Country: CN (occurrence: CN)
  Receive Date: 20160629
  Receipt Date: 20160629
  Transmission Date: 20160815
  Serious: Yes (Hospitalization)
  Sender: FDA-Public Use
  Company Number: CN-ELI_LILLY_AND_COMPANY-CN201606007792

PATIENT
  Age: 39 Year
  Sex: Female
  Weight: 51 kg

DRUGS (5)
  1. HUMULIN 70/30 [Suspect]
     Active Substance: INSULIN HUMAN
     Indication: DIABETES MELLITUS
     Dosage: 6 U, EACH MORNING
     Route: 058
     Dates: start: 2013
  2. METFORMIN [Concomitant]
     Active Substance: METFORMIN HYDROCHLORIDE
  3. HUMULIN 70/30 [Suspect]
     Active Substance: INSULIN HUMAN
     Dosage: 6 U, EACH MORNING
     Route: 058
  4. HUMULIN 70/30 [Suspect]
     Active Substance: INSULIN HUMAN
     Dosage: 8 U, EACH EVENING
     Route: 058
     Dates: start: 2013
  5. HUMULIN 70/30 [Suspect]
     Active Substance: INSULIN HUMAN
     Dosage: 8 U, EACH EVENING
     Route: 058

REACTIONS (2)
  - Diabetes mellitus [Unknown]
  - Inappropriate schedule of drug administration [Unknown]
